FAERS Safety Report 8256527-8 (Version None)
Quarter: 2012Q2

REPORT INFORMATION
  Report Type: 
  Country: None (occurrence: None)
  Receive Date: 20120403
  Receipt Date: 20120319
  Transmission Date: 20120825
  Serious: Yes (Other)
  Sender: FDA-Public Use
  Company Number: DE-CELGENEUS-062-50794-12032021

PATIENT
  Sex: Female

DRUGS (5)
  1. CYTARABINE [Suspect]
     Dosage: 1G/SQM
     Route: 041
  2. VIDAZA [Suspect]
     Route: 058
  3. CYTARABINE [Suspect]
     Route: 041
  4. VIDAZA [Suspect]
     Route: 041
  5. DAUNORUBICIN HCL [Suspect]
     Route: 041

REACTIONS (27)
  - PETECHIAE [None]
  - PRURITUS [None]
  - HYPOTENSION [None]
  - LEUKOCYTOCLASTIC VASCULITIS [None]
  - NEUTROPENIA [None]
  - FLATULENCE [None]
  - CHEST PAIN [None]
  - DIARRHOEA [None]
  - PERICHONDRITIS [None]
  - TACHYCARDIA [None]
  - PYREXIA [None]
  - VOMITING [None]
  - ABDOMINAL PAIN [None]
  - HEADACHE [None]
  - LEUKOPENIA [None]
  - DRY EYE [None]
  - RASH [None]
  - HAEMORRHOIDS [None]
  - NASAL DRYNESS [None]
  - THROMBOCYTOPENIA [None]
  - THROMBOPHLEBITIS [None]
  - PUNCTURE SITE PAIN [None]
  - CONSTIPATION [None]
  - BONE PAIN [None]
  - OEDEMA PERIPHERAL [None]
  - CHILLS [None]
  - EPISTAXIS [None]
